FAERS Safety Report 8108178-3 (Version None)
Quarter: 2012Q1

REPORT INFORMATION
  Report Type: 
  Country: None (occurrence: None)
  Receive Date: 20120202
  Receipt Date: 20120131
  Transmission Date: 20120608
  Serious: Yes (Death, Hospitalization, Other)
  Sender: FDA-Public Use
  Company Number: JP-BAYER-2011-020350

PATIENT
  Age: 76 Year
  Sex: Male
  Weight: 48 kg

DRUGS (6)
  1. PROHEPARUM [Concomitant]
     Dosage: 3 DF, QD
     Route: 048
  2. LAC B [Concomitant]
     Dosage: DAILY DOSE 3 G
     Route: 048
  3. NEXAVAR [Suspect]
     Indication: HEPATIC NEOPLASM MALIGNANT
     Dosage: 400 MG, QD
     Route: 048
     Dates: start: 20110119, end: 20110203
  4. POLITOSE [Concomitant]
     Dosage: 3 DF, QD
     Route: 048
  5. NEXAVAR [Suspect]
     Dosage: 400 MG IN AM;200 MG IN PM
     Route: 048
     Dates: start: 20110204, end: 20110214
  6. LIVACT [Concomitant]
     Dosage: DAILY DOSE 12.45 G
     Route: 048

REACTIONS (4)
  - HYPERAMMONAEMIA [None]
  - GASTROINTESTINAL HAEMORRHAGE [None]
  - UPPER RESPIRATORY TRACT INFLAMMATION [None]
  - HEPATIC FAILURE [None]
